FAERS Safety Report 9341561 (Version 3)
Quarter: 2014Q1

REPORT INFORMATION
  Report Type: Other
  Country: PL (occurrence: PL)
  Receive Date: 20130611
  Receipt Date: 20140127
  Transmission Date: 20141002
  Serious: Yes (Hospitalization, Other)
  Sender: FDA-Public Use
  Company Number: PL-MPIJNJ-2013-04395

PATIENT
  Sex: 0

DRUGS (1)
  1. VELCADE [Suspect]
     Indication: PLASMA CELL MYELOMA
     Dosage: 2.756 MG, UNK
     Route: 042
     Dates: start: 20130215, end: 20130325

REACTIONS (1)
  - Circulatory collapse [Not Recovered/Not Resolved]
